FAERS Safety Report 9476019 (Version 2)
Quarter: 2013Q4

REPORT INFORMATION
  Report Type: Spontaneous
  Country: US (occurrence: US)
  Receive Date: 20130826
  Receipt Date: 20131004
  Transmission Date: 20140711
  Serious: Yes (Other)
  Sender: FDA-Public Use
  Company Number: US-PFIZER INC-2013242227

PATIENT
  Age: 60 Year
  Sex: Male

DRUGS (1)
  1. SUTENT [Suspect]
     Indication: RENAL CANCER
     Dosage: 25 MG DAILY (ON 4 WEEKS WITH 2 WEEKS OFF), CYCLIC
     Route: 048
     Dates: start: 20120818, end: 20130820

REACTIONS (1)
  - Myocardial infarction [Not Recovered/Not Resolved]
